FAERS Safety Report 9420096 (Version 1)
Quarter: 2013Q3

REPORT INFORMATION
  Report Type: Report from Study
  Country: JP (occurrence: JP)
  Receive Date: 20130725
  Receipt Date: 20130725
  Transmission Date: 20140515
  Serious: Yes (Death)
  Sender: FDA-Public Use
  Company Number: JP-PFIZER INC-2013213493

PATIENT
  Age: 84 Year
  Sex: Female
  Weight: 51 kg

DRUGS (13)
  1. SILDENAFIL CITRATE [Suspect]
     Indication: PULMONARY ARTERIAL HYPERTENSION
     Dosage: 20 MG, 3X/DAY
     Route: 048
     Dates: start: 20100107
  2. PLAVIX [Concomitant]
     Dosage: UNK
     Route: 048
     Dates: end: 20120524
  3. ITOROL [Concomitant]
     Dosage: UNK
     Route: 048
     Dates: end: 20120524
  4. LASIX [Concomitant]
     Dosage: UNK
     Route: 048
     Dates: end: 20120524
  5. WARFARIN [Concomitant]
     Dosage: UNK
     Route: 048
     Dates: end: 20120524
  6. ARTIST [Concomitant]
     Dosage: UNK
     Route: 048
     Dates: end: 20120524
  7. TANATRIL ^TANABE^ [Concomitant]
     Dosage: UNK
     Route: 048
     Dates: end: 20120524
  8. BAYASPIRIN [Concomitant]
     Dosage: UNK
     Route: 048
     Dates: end: 20120524
  9. TAKEPRON [Concomitant]
     Dosage: UNK
     Route: 048
     Dates: end: 20120524
  10. LUPRAC [Concomitant]
     Dosage: UNK
     Route: 048
     Dates: end: 20120524
  11. ZYLORIC [Concomitant]
     Dosage: UNK
     Route: 048
     Dates: end: 20120524
  12. TRACLEER [Concomitant]
     Indication: PULMONARY HYPERTENSION
     Dosage: UNK
     Route: 048
     Dates: end: 20120524
  13. DORNER [Concomitant]
     Indication: PULMONARY HYPERTENSION
     Dosage: UNK
     Route: 048
     Dates: start: 20110117, end: 20120524

REACTIONS (1)
  - Death [Fatal]
